FAERS Safety Report 19041493 (Version 1)
Quarter: 2021Q1

REPORT INFORMATION
  Report Type: Spontaneous
  Country: US (occurrence: US)
  Receive Date: 20210323
  Receipt Date: 20210323
  Transmission Date: 20210420
  Serious: Yes (Death)
  Sender: FDA-Public Use
  Company Number: US-CURIUM-1999000046

PATIENT

DRUGS (1)
  1. XENON (XE 133) [Suspect]
     Active Substance: XENON XE-133
     Route: 055
     Dates: start: 19990301, end: 19990301

REACTIONS (1)
  - Death [Fatal]

NARRATIVE: CASE EVENT DATE: 19990301
